FAERS Safety Report 8467637 (Version 5)
Quarter: 2013Q1

REPORT INFORMATION
  Report Type: Spontaneous
  Country: US (occurrence: None)
  Receive Date: 20120314
  Receipt Date: 20130322
  Transmission Date: 20140127
  Serious: Yes (Other)
  Sender: FDA-Public Use
  Company Number: ADR-2012-00549

PATIENT
  Sex: Male

DRUGS (2)
  1. LIORESAL [Suspect]
     Indication: MUSCLE SPASTICITY
     Dosage: 311.4 MCG/DAY
  2. LIORESAL [Suspect]
     Dosage: 311.4 MCG/DAY

REACTIONS (8)
  - Implant site infection [None]
  - Implant site erosion [None]
  - Implant site discharge [None]
  - Weight decreased [None]
  - Device issue [None]
  - Agitation [None]
  - Device related infection [None]
  - Incision site complication [None]
